FAERS Safety Report 17972218 (Version 1)
Quarter: 2020Q3

REPORT INFORMATION
  Report Type: Report from Study
  Country: DE (occurrence: DE)
  Receive Date: 20200702
  Receipt Date: 20200702
  Transmission Date: 20201103
  Serious: Yes (Life-Threatening)
  Sender: FDA-Public Use
  Company Number: DE-TEVA-2020-DE-1793032

PATIENT
  Age: 83 Year
  Sex: Female
  Weight: 52 kg

DRUGS (45)
  1. METAMIZOLE [Concomitant]
     Active Substance: METAMIZOLE
     Indication: ABDOMINAL PAIN LOWER
     Route: 065
  2. PLATELETS [Concomitant]
     Active Substance: HUMAN PLATELET, ALLOGENIC
     Indication: ANAEMIA
     Route: 065
  3. PIPERACILLIN AND TAZOBACTAM [Concomitant]
     Active Substance: PIPERACILLIN SODIUM\TAZOBACTAM SODIUM
     Indication: DEVICE RELATED INFECTION
     Dosage: 18 G (4.5 GM, 4 IN 1 D)
     Route: 042
     Dates: start: 20190615, end: 20190623
  4. POTASSIUM [Concomitant]
     Active Substance: POTASSIUM
     Indication: PROPHYLAXIS
     Dosage: 40 MILLIMOL
     Route: 048
     Dates: start: 20190616, end: 20190618
  5. DIMENHYDRINAT [Concomitant]
     Active Substance: DIMENHYDRINATE
     Indication: PROPHYLAXIS OF NAUSEA AND VOMITING
     Dosage: 750 MILLIGRAM DAILY; ,1 IN 1 D)
     Route: 042
     Dates: start: 20190613, end: 20190613
  6. PROTHROMBIN COMPLEX CONCENTRATE NOS [Concomitant]
     Active Substance: COAGULATION FACTOR IX HUMAN\COAGULATION FACTOR VII HUMAN\COAGULATION FACTOR X HUMAN\PROTHROMBIN
     Indication: THROMBOSIS PROPHYLAXIS
     Route: 065
  7. PETHIDIN [Concomitant]
     Active Substance: MEPERIDINE
     Indication: ABDOMINAL PAIN LOWER
     Route: 065
  8. PARACETAMOL [Concomitant]
     Active Substance: ACETAMINOPHEN
     Dosage: 1000 MG (1000 MG,1 IN 1 D)
     Route: 042
     Dates: start: 20190612, end: 20190612
  9. PALLADON [Concomitant]
     Active Substance: HYDROMORPHONE
     Indication: BACK PAIN
     Dosage: 8 MG (4 MG, 2 IN 1 D)
     Route: 048
     Dates: start: 20190506
  10. OLIMEL [Concomitant]
     Active Substance: AMINO ACIDS\DEXTROSE\SOYBEAN OIL
     Indication: PARENTERAL NUTRITION
     Dosage: 1000 ML
     Route: 042
     Dates: start: 20190615, end: 20190617
  11. FLUDARABINE [Suspect]
     Active Substance: FLUDARABINE PHOSPHATE
     Indication: CERVIX CARCINOMA
     Dosage: 36.75 MG
     Route: 042
     Dates: start: 20190613, end: 20190615
  12. FLUDARABINE [Suspect]
     Active Substance: FLUDARABINE PHOSPHATE
     Dosage: 36.75 MILLIGRAM DAILY; 1 IN 1 D
     Route: 042
     Dates: start: 20190613, end: 20190615
  13. PARACETAMOL [Concomitant]
     Active Substance: ACETAMINOPHEN
     Dosage: 2000 MG (1000 MG, 2 IN 1 D)
     Route: 048
     Dates: start: 20190616, end: 20190617
  14. BISOPROLOL [Concomitant]
     Active Substance: BISOPROLOL
     Indication: HYPERTENSION
     Dosage: 2.5 MG
     Route: 065
     Dates: start: 201807
  15. HUMANALBUMIN [Concomitant]
     Active Substance: ALBUMIN HUMAN
     Indication: PRODUCT USED FOR UNKNOWN INDICATION
     Route: 065
  16. METOCLOPRAMID [Concomitant]
     Active Substance: METOCLOPRAMIDE
     Indication: PROPHYLAXIS OF NAUSEA AND VOMITING
     Dosage: 10 MILLIGRAM DAILY;  1 IN 1 D)
     Route: 065
     Dates: start: 20190612, end: 20190612
  17. VITAMIN K1 [Concomitant]
     Active Substance: PHYTONADIONE
     Indication: THROMBOSIS PROPHYLAXIS
     Route: 065
  18. PARACETAMOL [Concomitant]
     Active Substance: ACETAMINOPHEN
     Indication: DEVICE RELATED INFECTION
     Dosage: 500 MILLIGRAM DAILY; ,1 IN 1 D)
     Route: 048
     Dates: start: 20190616, end: 20190616
  19. ELECTROLYTE SOLUTIONS [Concomitant]
     Active Substance: UNSPECIFIED INGREDIENT
     Indication: PROPHYLAXIS AGAINST DEHYDRATION
     Route: 042
     Dates: start: 20190611, end: 20190621
  20. LIXIANA [Concomitant]
     Active Substance: EDOXABAN TOSYLATE
     Indication: THROMBOSIS PROPHYLAXIS
     Dosage: 60 MG
     Route: 048
     Dates: start: 201809, end: 20190616
  21. ACICLOVIR [Concomitant]
     Active Substance: ACYCLOVIR
     Indication: DEVICE RELATED INFECTION
     Route: 065
  22. POTASSIUM CHLORIDE. [Concomitant]
     Active Substance: POTASSIUM CHLORIDE
     Indication: PROPHYLAXIS
     Dosage: 40 MG
     Route: 048
     Dates: start: 20190616, end: 20190618
  23. PANTOPRAZOL [Concomitant]
     Active Substance: PANTOPRAZOLE SODIUM
     Indication: PROPHYLAXIS AGAINST GASTROINTESTINAL ULCER
     Dosage: 20 MG
     Route: 048
     Dates: start: 201807
  24. PALLADON [Concomitant]
     Active Substance: HYDROMORPHONE
     Dosage: 1.3 MG, PRN
     Route: 048
     Dates: start: 20190508, end: 20190802
  25. PROLEUKIN [Suspect]
     Active Substance: ALDESLEUKIN
     Indication: CERVIX CARCINOMA
     Dosage: 33000000 IU (3 SACHET, ONCE), Q8H (POWDER FOR SOLUTION FOR INJECTION OR INFUSION)
     Route: 042
     Dates: start: 20190618, end: 20190619
  26. LN?145 [Suspect]
     Active Substance: LIFILEUCEL
     Indication: CERVIX CARCINOMA
     Route: 042
     Dates: start: 20190618, end: 20190618
  27. VANCOMYCIN [Concomitant]
     Active Substance: VANCOMYCIN
     Indication: DEVICE RELATED INFECTION
     Dosage: UNK
     Route: 065
     Dates: start: 20190617, end: 20190617
  28. FLUCONAZOL [Concomitant]
     Active Substance: FLUCONAZOLE
     Indication: DEVICE RELATED INFECTION
     Route: 065
  29. THROMBOCYTECONCENTRATE [Concomitant]
     Indication: ANAEMIA
  30. ZOPICLON [Concomitant]
     Active Substance: ZOPICLONE
     Indication: PROPHYLAXIS
     Dosage: 3.75 MILLIGRAM DAILY; (1 IN 1 D)
     Route: 048
  31. LORAZEPAM. [Concomitant]
     Active Substance: LORAZEPAM
     Indication: PROPHYLAXIS
     Route: 065
  32. ONDANSETRON [Concomitant]
     Active Substance: ONDANSETRON
     Indication: NAUSEA
     Route: 065
  33. FUROSEMID [Concomitant]
     Active Substance: FUROSEMIDE
     Indication: PROPHYLAXIS
     Route: 065
  34. GRANISETRON [Concomitant]
     Active Substance: GRANISETRON
     Indication: PREMEDICATION
     Dosage: 3 MG
     Route: 042
     Dates: start: 20190611, end: 20190615
  35. FOSAPREPITANT [Concomitant]
     Active Substance: FOSAPREPITANT
     Indication: PREMEDICATION
     Dosage: 150 MG
     Route: 042
     Dates: start: 20190611, end: 20190612
  36. ZOPICLON [Concomitant]
     Active Substance: ZOPICLONE
     Dosage: 3.75 MG (1 IN 1 D)
     Route: 048
     Dates: start: 20190614, end: 20190614
  37. CYCLOPHOSPHAMIDE. [Suspect]
     Active Substance: CYCLOPHOSPHAMIDE
     Indication: CERVIX CARCINOMA
     Dosage: 2736 MILLIGRAM DAILY; 1 IN 1 D)
     Route: 042
     Dates: start: 20190611, end: 20190612
  38. PIPERACILLIN AND TAZOBACTAM [Concomitant]
     Active Substance: PIPERACILLIN SODIUM\TAZOBACTAM SODIUM
     Dosage: 9 G (4.5 GM, 2 IN 1 D)
     Route: 042
     Dates: start: 20190611, end: 20190623
  39. SMOFKABIVEN [Concomitant]
     Active Substance: AMINO ACIDS\DEXTROSE\ELECTROLYTES NOS\SOYBEAN OIL
     Indication: PARENTERAL NUTRITION
     Dosage: 960 ML
     Route: 042
     Dates: start: 20190615, end: 20190616
  40. ERYTHROCYTES [Concomitant]
     Active Substance: HUMAN RED BLOOD CELL
     Indication: ANAEMIA
     Dosage: 300 ML
     Route: 065
     Dates: start: 20190615, end: 20190615
  41. LEVOFLOXACIN. [Concomitant]
     Active Substance: LEVOFLOXACIN
     Indication: DEVICE RELATED INFECTION
     Dosage: UNK
     Route: 065
     Dates: start: 20190613, end: 20190613
  42. ELECTROLYTE SOLUTIONS [Concomitant]
     Active Substance: UNSPECIFIED INGREDIENT
     Route: 042
     Dates: start: 20190612, end: 20190613
  43. MOVICOL [Concomitant]
     Active Substance: POLYETHYLENE GLYCOL 3350\POTASSIUM CHLORIDE\SODIUM BICARBONATE\SODIUM CHLORIDE
     Indication: CONSTIPATION PROPHYLAXIS
     Dosage: 3 SACHET (1 SACHET, 3 IN 1 D)
     Route: 048
     Dates: start: 20190506
  44. VANCOMYCIN [Concomitant]
     Active Substance: VANCOMYCIN
     Dates: start: 20190617, end: 20190617
  45. FILGRASTIM [Concomitant]
     Active Substance: FILGRASTIM
     Indication: PRODUCT USED FOR UNKNOWN INDICATION
     Route: 065

REACTIONS (1)
  - Respiratory failure [Not Recovered/Not Resolved]

NARRATIVE: CASE EVENT DATE: 20190620
